FAERS Safety Report 25428519 (Version 1)
Quarter: 2025Q2

REPORT INFORMATION
  Report Type: Spontaneous
  Country: US (occurrence: None)
  Receive Date: 20250611
  Receipt Date: 20250611
  Transmission Date: 20250717
  Serious: Yes (Hospitalization)
  Sender: FDA-CTU
  Company Number: None

PATIENT
  Age: 81 Year
  Sex: Male
  Weight: 82.8 kg

DRUGS (6)
  1. CISPLATIN [Suspect]
     Active Substance: CISPLATIN
     Indication: Bladder cancer
     Route: 042
     Dates: start: 20250415, end: 20250506
  2. sodium chloride 0.9% infusion 500 mL IV once x2 [Concomitant]
     Dates: start: 20250506, end: 20250506
  3. aprepitant injection 130 mg IV once [Concomitant]
     Dates: start: 20250506, end: 20250506
  4. palonosetron injection 0.25 mg IV once [Concomitant]
     Dates: start: 20250506, end: 20250506
  5. dexamethasone in 0.9% NaCl 12 mg/25 mL IVPB IV once [Concomitant]
     Dates: start: 20250506, end: 20250506
  6. NS 493 mL with KCl 10 mEQ, magnesium sulfate 1g IV once [Concomitant]
     Dates: start: 20250506, end: 20250506

REACTIONS (1)
  - Vision blurred [None]

NARRATIVE: CASE EVENT DATE: 20250506
